FAERS Safety Report 4310997-6 (Version None)
Quarter: 2004Q1

REPORT INFORMATION
  Report Type: 
  Country: None (occurrence: None)
  Receive Date: 20040302
  Receipt Date: 20040222
  Transmission Date: 20041129
  Serious: Yes (Hospitalization, Other)
  Sender: FDA-Public Use
  Company Number: 2004011744

PATIENT
  Age: 16 Year
  Sex: Male
  Weight: 127.0072 kg

DRUGS (3)
  1. ZITHROMAX [Suspect]
     Indication: PHARYNGOLARYNGEAL PAIN
     Dosage: ORAL
     Route: 048
     Dates: start: 20031208, end: 20031210
  2. CLARITIN [Concomitant]
  3. HEPATITIS B VACCINE (HEPATITIS B VACCINE) [Concomitant]

REACTIONS (12)
  - ANAPHYLACTIC SHOCK [None]
  - ASTHENIA [None]
  - COUGH [None]
  - DIARRHOEA [None]
  - DRUG HYPERSENSITIVITY [None]
  - LARYNGITIS [None]
  - OESOPHAGITIS [None]
  - PAIN [None]
  - PARAPHARYNGEAL ABSCESS [None]
  - SWELLING FACE [None]
  - THERMAL BURN [None]
  - THROAT IRRITATION [None]
